FAERS Safety Report 9143513 (Version 2)
Quarter: 2013Q1

REPORT INFORMATION
  Report Type: Spontaneous
  Country: US (occurrence: US)
  Receive Date: 20130306
  Receipt Date: 20130307
  Transmission Date: 20140127
  Serious: Yes (Hospitalization)
  Sender: FDA-Public Use
  Company Number: US-SANOFI-AVENTIS-2013SA021098

PATIENT
  Age: 22 Year
  Sex: Male

DRUGS (1)
  1. AUBAGIO [Suspect]
     Indication: MULTIPLE SCLEROSIS
     Route: 048
     Dates: start: 20130101

REACTIONS (4)
  - Multiple sclerosis [Recovered/Resolved]
  - Paralysis [Recovered/Resolved]
  - Rash [Not Recovered/Not Resolved]
  - Drug dose omission [Unknown]
